FAERS Safety Report 7328931-3 (Version None)
Quarter: 2011Q1

REPORT INFORMATION
  Report Type: 
  Country: None (occurrence: None)
  Receive Date: 20110303
  Receipt Date: 20110222
  Transmission Date: 20110831
  Serious: Yes (Hospitalization)
  Sender: FDA-Public Use
  Company Number: US-ASTRAZENECA-2011SE09900

PATIENT
  Sex: Male

DRUGS (3)
  1. SEROQUEL [Suspect]
     Indication: SCHIZOPHRENIA
     Route: 048
  2. SEROQUEL [Suspect]
     Route: 048
  3. SEROQUEL [Suspect]
     Route: 048

REACTIONS (7)
  - THERAPEUTIC RESPONSE UNEXPECTED [None]
  - HOSPITALISATION [None]
  - FEELING ABNORMAL [None]
  - NO ADVERSE EVENT [None]
  - DRUG INEFFECTIVE [None]
  - GENERALISED OEDEMA [None]
  - TACHYPHRENIA [None]
